FAERS Safety Report 20266260 (Version 1)
Quarter: 2021Q4

REPORT INFORMATION
  Report Type: Spontaneous
  Country: CH (occurrence: CH)
  Receive Date: 20211231
  Receipt Date: 20211231
  Transmission Date: 20220303
  Serious: Yes (Hospitalization, Other)
  Sender: FDA-Public Use
  Company Number: CH-IPCA LABORATORIES LIMITED-IPC-2021-CH-002099

PATIENT

DRUGS (5)
  1. ATENOLOL [Suspect]
     Active Substance: ATENOLOL
     Indication: Atrial flutter
     Dosage: 50 MILLIGRAM, QD
     Route: 048
  2. CLARITHROMYCIN [Interacting]
     Active Substance: CLARITHROMYCIN
     Indication: Cough
     Dosage: 500 MILLIGRAM, QD (2 DOSES)
     Route: 048
  3. ISRADIPINE [Interacting]
     Active Substance: ISRADIPINE
     Indication: Hypertension
     Dosage: 5 MILLIGRAM, QD
     Route: 048
  4. ACETYLCYSTEINE [Concomitant]
     Active Substance: ACETYLCYSTEINE
     Indication: Product used for unknown indication
     Dosage: 200 MILLIGRAM, QD (2 DOSES)
     Route: 065
  5. CHLOROQUINE [Concomitant]
     Active Substance: CHLOROQUINE
     Indication: Malaria prophylaxis
     Dosage: 300 MILLIGRAM/WEEK
     Route: 065

REACTIONS (9)
  - Acute hepatic failure [Recovering/Resolving]
  - Metabolic acidosis [Recovering/Resolving]
  - Hepatic encephalopathy [Recovering/Resolving]
  - Oedema peripheral [Recovering/Resolving]
  - Asthenia [Recovering/Resolving]
  - Nausea [Recovering/Resolving]
  - Jaundice [Recovering/Resolving]
  - Diarrhoea [Recovering/Resolving]
  - Drug interaction [Unknown]
